FAERS Safety Report 9922399 (Version 1)
Quarter: 2014Q1

REPORT INFORMATION
  Report Type: Spontaneous
  Country: US (occurrence: None)
  Receive Date: 20140224
  Receipt Date: 20140224
  Transmission Date: 20141002
  Serious: Yes (Hospitalization)
  Sender: FDA-Public Use
  Company Number: None

PATIENT
  Age: 60 Year
  Sex: Male

DRUGS (1)
  1. FORTESTA [Suspect]
     Indication: BLOOD TESTOSTERONE DECREASED
     Dosage: 2 PUMPS  ONCE DAILY APPLIED TO A SURFACE, USUALLY THE SKIN
     Dates: start: 20130116, end: 20130606

REACTIONS (5)
  - Road traffic accident [None]
  - Cerebrovascular accident [None]
  - Epistaxis [None]
  - Ear haemorrhage [None]
  - Abnormal behaviour [None]
